FAERS Safety Report 18740475 (Version 1)
Quarter: 2021Q1

REPORT INFORMATION
  Report Type: Spontaneous
  Country: US (occurrence: US)
  Receive Date: 20210113
  Receipt Date: 20210113
  Transmission Date: 20210419
  Serious: Yes (Death)
  Sender: FDA-Public Use
  Company Number: None

PATIENT
  Age: 81 Year
  Sex: Male
  Weight: 87 kg

DRUGS (1)
  1. RIVAROXABAN (RIVAROXABAN 20MG TAB, UD) [Suspect]
     Active Substance: RIVAROXABAN
     Indication: ATRIAL FLUTTER
     Route: 048
     Dates: start: 20190828, end: 20210108

REACTIONS (4)
  - Right ventricular enlargement [None]
  - Subdural haematoma [None]
  - COVID-19 pneumonia [None]
  - Brain midline shift [None]

NARRATIVE: CASE EVENT DATE: 20210108
